FAERS Safety Report 10667311 (Version 2)
Quarter: 2025Q4

REPORT INFORMATION
  Report Type: Spontaneous
  Country: AU (occurrence: AU)
  Receive Date: 20141222
  Receipt Date: 20251222
  Transmission Date: 20260119
  Serious: Yes (Other)
  Sender: NOVARTIS
  Company Number: PHHY2014AU165940

PATIENT
  Age: 71 Year
  Sex: Male

DRUGS (2)
  1. EVEROLIMUS [Suspect]
     Active Substance: EVEROLIMUS
     Indication: Lung carcinoma cell type unspecified stage IV
     Dosage: UNK
     Route: 065
  2. LETROZOLE [Suspect]
     Active Substance: LETROZOLE
     Indication: Lung carcinoma cell type unspecified stage IV
     Dosage: UNK
     Route: 065

REACTIONS (3)
  - Lung carcinoma cell type unspecified stage IV [Unknown]
  - Malignant neoplasm progression [Unknown]
  - Off label use [Unknown]
